FAERS Safety Report 19654397 (Version 1)
Quarter: 2021Q3

REPORT INFORMATION
  Report Type: Spontaneous
  Country: GB (occurrence: GB)
  Receive Date: 20210804
  Receipt Date: 20210804
  Transmission Date: 20211014
  Serious: Yes (Disabling)
  Sender: FDA-Public Use
  Company Number: GB-NOVOPROD-832940

PATIENT
  Age: 46 Year
  Sex: Female
  Weight: 104 kg

DRUGS (8)
  1. SUKKARTO [Concomitant]
     Active Substance: METFORMIN HYDROCHLORIDE
     Indication: ILL-DEFINED DISORDER
     Dosage: UNK
  2. OZEMPIC [Suspect]
     Active Substance: SEMAGLUTIDE
     Dosage: 0.5 MG, QW(INITIALLY  0.25MG WEEKLY TITRATED MONTHLY TO 0.5MG WEEKLY  THEN 1MG WEEKLY ONGOING)
     Route: 058
  3. CERELLE [Concomitant]
     Active Substance: DESOGESTREL
     Dosage: UNK
  4. OZEMPIC [Suspect]
     Active Substance: SEMAGLUTIDE
     Indication: TYPE 2 DIABETES MELLITUS
     Dosage: 0.25 MG, QW(INITIALLY  0.25MG WEEKLY TITRATED MONTHLY TO 0.5MG WEEKLY  THEN 1MG WEEKLY ONGOING)
     Route: 058
     Dates: start: 20201006
  5. GLIMEPIRIDE. [Concomitant]
     Active Substance: GLIMEPIRIDE
     Indication: ILL-DEFINED DISORDER
     Dosage: UNK
  6. OZEMPIC [Suspect]
     Active Substance: SEMAGLUTIDE
     Dosage: 1 MG, QW(INITIALLY  0.25MG WEEKLY TITRATED MONTHLY TO 0.5MG WEEKLY  THEN 1MG WEEKLY ONGOING)
     Route: 058
     Dates: end: 20210618
  7. CYANOCOBALAMIN. [Concomitant]
     Active Substance: CYANOCOBALAMIN
     Indication: ILL-DEFINED DISORDER
     Dosage: UNK
  8. CYPROTERONE [Concomitant]
     Active Substance: CYPROTERONE
     Indication: ILL-DEFINED DISORDER
     Dosage: UNK

REACTIONS (2)
  - Vision blurred [Unknown]
  - Visual acuity reduced [Not Recovered/Not Resolved]

NARRATIVE: CASE EVENT DATE: 202012
